FAERS Safety Report 7491139-5 (Version None)
Quarter: 2011Q2

REPORT INFORMATION
  Report Type: 
  Country: None (occurrence: None)
  Receive Date: 20110519
  Receipt Date: 20110511
  Transmission Date: 20111010
  Serious: Yes (Other)
  Sender: FDA-Public Use
  Company Number: JP-AMGEN-US368724

PATIENT
  Age: 42 Year
  Sex: Female

DRUGS (1)
  1. ENBREL [Suspect]
     Indication: RHEUMATOID ARTHRITIS
     Dosage: UNK UNK, UNK
     Route: 058
     Dates: start: 20050101, end: 20070201

REACTIONS (4)
  - INTERSTITIAL LUNG DISEASE [None]
  - PNEUMONIA BACTERIAL [None]
  - PNEUMONIA ASPIRATION [None]
  - PNEUMONIA PRIMARY ATYPICAL [None]
